FAERS Safety Report 18885871 (Version 1)
Quarter: 2021Q1

REPORT INFORMATION
  Report Type: Spontaneous
  Country: US (occurrence: US)
  Receive Date: 20210211
  Receipt Date: 20210211
  Transmission Date: 20210420
  Serious: Yes (Hospitalization)
  Sender: FDA-Public Use
  Company Number: None

PATIENT
  Age: 74 Year
  Sex: Male
  Weight: 92 kg

DRUGS (1)
  1. BACLOFEN (BACLOFEN 10MG TAB) [Suspect]
     Active Substance: BACLOFEN
     Indication: PAIN
     Dates: start: 20190808, end: 20201223

REACTIONS (3)
  - Nasopharyngitis [None]
  - Chest pain [None]
  - Angioedema [None]

NARRATIVE: CASE EVENT DATE: 20201222
